FAERS Safety Report 7401223-X (Version None)
Quarter: 2011Q2

REPORT INFORMATION
  Report Type: 
  Country: None (occurrence: None)
  Receive Date: 20110407
  Receipt Date: 20110406
  Transmission Date: 20111010
  Serious: Yes (Hospitalization, Other)
  Sender: FDA-Public Use
  Company Number: NL-ROXANE LABORATORIES, INC.-2011-RO-00457RO

PATIENT
  Age: 63 Year
  Sex: Male

DRUGS (6)
  1. SUNITINIB [Suspect]
     Indication: METASTASES TO LYMPH NODES
     Dosage: 50 MG
     Route: 048
  2. TOLBUTAMIDE [Suspect]
  3. AMLODIPINE BESYLATE [Suspect]
     Indication: HYPERTENSION
     Dosage: 5 MG
  4. SUNITINIB [Suspect]
     Dosage: 37.5 MG
     Route: 048
  5. ATENOLOL [Suspect]
  6. HALOPERIDOL [Suspect]

REACTIONS (3)
  - HYPONATRAEMIA [None]
  - PALMAR-PLANTAR ERYTHRODYSAESTHESIA SYNDROME [None]
  - PSYCHOTIC DISORDER [None]
